FAERS Safety Report 6959074-6 (Version None)
Quarter: 2010Q3

REPORT INFORMATION
  Report Type: 
  Country: None (occurrence: None)
  Receive Date: 20100825
  Receipt Date: 20100820
  Transmission Date: 20110219
  Serious: Yes (Other)
  Sender: FDA-Public Use
  Company Number: 2010SP036020

PATIENT
  Age: 34 Year
  Sex: Female

DRUGS (9)
  1. SAPHRIS [Suspect]
     Dosage: 5 MG;QD;PO ; 10 MG;QD;PO ; 5 MG;QD;PO ; 7.5 MG;QD;PO
     Route: 048
     Dates: start: 20100619, end: 20100626
  2. SAPHRIS [Suspect]
     Dosage: 5 MG;QD;PO ; 10 MG;QD;PO ; 5 MG;QD;PO ; 7.5 MG;QD;PO
     Route: 048
     Dates: start: 20100318
  3. SAPHRIS [Suspect]
     Dosage: 5 MG;QD;PO ; 10 MG;QD;PO ; 5 MG;QD;PO ; 7.5 MG;QD;PO
     Route: 048
     Dates: start: 20100401
  4. SAPHRIS [Suspect]
     Dosage: 5 MG;QD;PO ; 10 MG;QD;PO ; 5 MG;QD;PO ; 7.5 MG;QD;PO
     Route: 048
     Dates: start: 20100605
  5. LAMICTAL [Concomitant]
  6. KLONOPIN [Concomitant]
  7. VITAMIN D [Concomitant]
  8. LITHIUM [Concomitant]
  9. ERGOCALCIFEROL [Concomitant]

REACTIONS (5)
  - AGITATION [None]
  - DEPRESSION [None]
  - IRRITABILITY [None]
  - PANIC DISORDER [None]
  - SUICIDAL IDEATION [None]
